FAERS Safety Report 23002477 (Version 8)
Quarter: 2024Q2

REPORT INFORMATION
  Report Type: Spontaneous
  Country: JP (occurrence: None)
  Receive Date: 20230928
  Receipt Date: 20240503
  Transmission Date: 20240715
  Serious: Yes (Death, Life-Threatening, Hospitalization, Disabling, Other)
  Sender: FDA-Public Use
  Company Number: 2023A219537

PATIENT
  Age: 81 Year
  Sex: Male
  Weight: 49 kg

DRUGS (4)
  1. IMFINZI [Suspect]
     Active Substance: DURVALUMAB
     Indication: Bile duct cancer
     Route: 041
     Dates: start: 20230616, end: 20230616
  2. IMFINZI [Suspect]
     Active Substance: DURVALUMAB
     Indication: Bile duct cancer
     Route: 041
     Dates: start: 20230711, end: 20230801
  3. GEMCITABINE HYDROCHLORIDE [Concomitant]
     Active Substance: GEMCITABINE HYDROCHLORIDE
     Indication: Bile duct cancer
     Dosage: 1241.2MG UNKNOWN
     Dates: start: 20230616
  4. ACETAMINOPHEN [Concomitant]
     Active Substance: ACETAMINOPHEN
     Indication: Analgesic therapy
     Dosage: DOSE UNKNOWN
     Dates: start: 20230808, end: 20230830

REACTIONS (10)
  - Blood bilirubin increased [Fatal]
  - Hepatic failure [Fatal]
  - Interstitial lung disease [Recovering/Resolving]
  - Immune-mediated cholangitis [Not Recovered/Not Resolved]
  - Immune-mediated hypothyroidism [Not Recovered/Not Resolved]
  - Platelet count decreased [Recovered/Resolved]
  - Cholangitis [Unknown]
  - Anaemia [Unknown]
  - White blood cell count decreased [Unknown]
  - Renal impairment [Unknown]

NARRATIVE: CASE EVENT DATE: 20230101
